FAERS Safety Report 18658594 (Version 3)
Quarter: 2021Q1

REPORT INFORMATION
  Report Type: Spontaneous
  Country: GB (occurrence: GB)
  Receive Date: 20201224
  Receipt Date: 20210225
  Transmission Date: 20210419
  Serious: Yes (Other)
  Sender: FDA-Public Use
  Company Number: GB-BIOVITRUM-2020GB7873

PATIENT
  Age: 45 Year
  Sex: Male

DRUGS (17)
  1. COLECALCIFEROL [Concomitant]
     Active Substance: CHOLECALCIFEROL
  2. RELTEBON [Concomitant]
     Active Substance: OXYCODONE HYDROCHLORIDE
  3. ORFADIN [Suspect]
     Active Substance: NITISINONE
     Indication: ALKAPTONURIA
     Dates: start: 2012
  4. FENTANYL TRANSDERMAL SYSTEM [Concomitant]
     Active Substance: FENTANYL
  5. CALCIUM CARBONATE. [Concomitant]
     Active Substance: CALCIUM CARBONATE
  6. MULTI VIT [Concomitant]
     Active Substance: VITAMINS
  7. FENTANYL TRANSDERMAL SYSTEM [Concomitant]
     Active Substance: FENTANYL
  8. ALENDRONIC ACID [Concomitant]
     Active Substance: ALENDRONIC ACID
  9. CALCIUM SUPPLEMENT [Concomitant]
     Active Substance: CALCIUM
  10. DICLOFENAC GEL [Concomitant]
     Active Substance: DICLOFENAC
  11. CALCIUM D3 [Concomitant]
     Active Substance: CALCIUM\CHOLECALCIFEROL
  12. MORPHINE SULPHATE [Concomitant]
     Active Substance: MORPHINE SULFATE
  13. OXYCODONE [Concomitant]
     Active Substance: OXYCODONE
  14. DULOXETINE. [Concomitant]
     Active Substance: DULOXETINE
  15. FORCEVAL [Concomitant]
     Active Substance: FOLIC ACID\IRON\MINERALS\VITAMINS
  16. FENTANYL TRANSDERMAL SYSTEM [Concomitant]
     Active Substance: FENTANYL
  17. ADCAL D3 [Concomitant]
     Active Substance: CALCIUM CARBONATE\CHOLECALCIFEROL

REACTIONS (2)
  - Lenticular opacities [Unknown]
  - Amino acid level increased [Unknown]

NARRATIVE: CASE EVENT DATE: 2012
